FAERS Safety Report 7215758-6 (Version None)
Quarter: 2011Q1

REPORT INFORMATION
  Report Type: 
  Country: None (occurrence: None)
  Receive Date: 20110107
  Receipt Date: 20110105
  Transmission Date: 20110831
  Serious: Yes (Hospitalization, Disabling, Other)
  Sender: FDA-Public Use
  Company Number: JP-PFIZER INC-2010126796

PATIENT
  Age: 69 Year
  Sex: Male
  Weight: 64 kg

DRUGS (13)
  1. MEZOLMIN [Concomitant]
     Dosage: UNK
     Dates: end: 20100904
  2. DOXAZOSIN MESILATE [Concomitant]
     Dosage: UNK
     Dates: end: 20100908
  3. ATENOLOL [Concomitant]
     Dosage: UNK
     Dates: start: 20100904, end: 20100909
  4. OLMETEC [Concomitant]
     Dosage: UNK
     Dates: start: 20080605, end: 20100909
  5. LANSOPRAZOLE [Concomitant]
     Dosage: UNK
     Dates: start: 20080605, end: 20100908
  6. AMLODIPINE BESILATE [Concomitant]
     Dosage: UNK
     Dates: end: 20100908
  7. URIEF [Concomitant]
     Dosage: UNK
     Route: 048
  8. THYRADIN S [Concomitant]
     Dosage: UNK
     Route: 048
  9. NATRIX [Concomitant]
     Dosage: UNK
     Dates: start: 20100528, end: 20100701
  10. TORASEMIDE [Concomitant]
     Indication: HYPOAESTHESIA
     Dosage: 100 MG, 2X/DAY
     Route: 048
     Dates: start: 20100904
  11. CELECOX [Suspect]
     Indication: HYPOAESTHESIA
     Dosage: 200 MG, UNKNOWN/D
     Route: 048
     Dates: start: 20081202, end: 20100908
  12. DUTASTERIDE [Concomitant]
     Dosage: UNK
     Route: 048
  13. WARFARIN [Concomitant]
     Dosage: UNK
     Route: 065

REACTIONS (5)
  - APHAGIA [None]
  - DIARRHOEA [None]
  - PROTEIN-LOSING GASTROENTEROPATHY [None]
  - OEDEMA [None]
  - HYPOALBUMINAEMIA [None]
